FAERS Safety Report 6232620-6 (Version None)
Quarter: 2009Q2

REPORT INFORMATION
  Report Type: 
  Country: None (occurrence: None)
  Receive Date: 20090615
  Receipt Date: 20090603
  Transmission Date: 20091009
  Serious: Yes (Death, Hospitalization)
  Sender: FDA-Public Use
  Company Number: 2008-04841

PATIENT
  Age: 76 Year
  Sex: Male
  Weight: 80.8 kg

DRUGS (3)
  1. VELCADE [Suspect]
     Indication: ACUTE MYELOID LEUKAEMIA
     Dosage: 1.3 MG/M2, UNK, INTRAVENOUS
     Route: 042
     Dates: start: 20090115
  2. DECITABINE(DECITABINE) INJECTION [Suspect]
     Indication: ACUTE MYELOID LEUKAEMIA
     Dosage: 20 MG/M2, UNK, INTRAVENOUS
     Route: 042
     Dates: start: 20081113, end: 20081219
  3. DECITABINE(DECITABINE) INJECTION [Suspect]
     Indication: ACUTE MYELOID LEUKAEMIA
     Dosage: 20 MG/M2, UNK, INTRAVENOUS
     Route: 042
     Dates: start: 20090115, end: 20090118

REACTIONS (12)
  - ACINETOBACTER BACTERAEMIA [None]
  - ANOREXIA [None]
  - BLOOD ALKALINE PHOSPHATASE INCREASED [None]
  - CONFUSIONAL STATE [None]
  - DRUG DOSE OMISSION [None]
  - FEBRILE NEUTROPENIA [None]
  - HEPATIC LESION [None]
  - HEPATOSPLENIC CANDIDIASIS [None]
  - HYPOXIA [None]
  - NEUTROPENIA [None]
  - PNEUMONIA [None]
  - SPLENIC LESION [None]
